FAERS Safety Report 20507673 (Version 1)
Quarter: 2022Q1

REPORT INFORMATION
  Report Type: Spontaneous
  Country: NL (occurrence: NL)
  Receive Date: 20220223
  Receipt Date: 20220223
  Transmission Date: 20220424
  Serious: Yes (Hospitalization, Other)
  Sender: FDA-Public Use
  Company Number: None

PATIENT
  Sex: Female
  Weight: 91 kg

DRUGS (5)
  1. IBRANCE [Suspect]
     Active Substance: PALBOCICLIB
     Indication: Breast cancer metastatic
     Dosage: 1X/DAY FOR 21 DAYS EVERY 4 WEEKS
     Dates: start: 20210617, end: 20211214
  2. AMLODIPINE BESYLATE [Concomitant]
     Active Substance: AMLODIPINE BESYLATE
     Dosage: 5 MG
  3. FULVESTRANT [Concomitant]
     Active Substance: FULVESTRANT
  4. OMEPRAZOLE [Concomitant]
     Active Substance: OMEPRAZOLE
  5. APIXABAN [Concomitant]
     Active Substance: APIXABAN

REACTIONS (1)
  - Erythema multiforme [Recovered/Resolved]

NARRATIVE: CASE EVENT DATE: 20220205
